FAERS Safety Report 11899846 (Version 1)
Quarter: 2016Q1

REPORT INFORMATION
  Report Type: Spontaneous
  Country: US (occurrence: US)
  Receive Date: 20160108
  Receipt Date: 20160108
  Transmission Date: 20160526
  Serious: No
  Sender: FDA-Public Use
  Company Number: US-BAYER-2015-496416

PATIENT
  Age: 55 Year
  Sex: Female

DRUGS (6)
  1. CLIMARA PRO [Suspect]
     Active Substance: ESTRADIOL\LEVONORGESTREL
     Dosage: UNK
     Route: 062
     Dates: end: 20151123
  2. TYLENOL WITH CODEINE [Concomitant]
     Active Substance: ACETAMINOPHEN\CODEINE PHOSPHATE
  3. RITONAVIR. [Suspect]
     Active Substance: RITONAVIR
     Indication: CHRONIC HEPATITIS C
     Dosage: UNK UNK, QD
     Route: 048
     Dates: start: 20151014
  4. CELEXA [Concomitant]
     Active Substance: CITALOPRAM HYDROBROMIDE
  5. RIBAVIRIN. [Suspect]
     Active Substance: RIBAVIRIN
     Indication: CHRONIC HEPATITIS C
     Dosage: DAILY DOSE 1000 MG
     Route: 048
     Dates: start: 20151014
  6. XANAX [Concomitant]
     Active Substance: ALPRAZOLAM

REACTIONS (3)
  - Ear swelling [None]
  - Local swelling [Unknown]
  - Ear pain [Unknown]

NARRATIVE: CASE EVENT DATE: 201511
